FAERS Safety Report 5911074-0 (Version None)
Quarter: 2008Q4

REPORT INFORMATION
  Report Type: 
  Country: None (occurrence: None)
  Receive Date: 20081007
  Receipt Date: 20071001
  Transmission Date: 20090506
  Serious: No
  Sender: FDA-Public Use
  Company Number: US-BRISTOL-MYERS SQUIBB COMPANY-13924683

PATIENT
  Age: 73 Year
  Sex: Female
  Weight: 52 kg

DRUGS (10)
  1. AVAPRO [Suspect]
     Indication: HYPERTENSION
     Route: 048
  2. MIACALCIN [Concomitant]
  3. MIRTAZAPINE [Concomitant]
  4. TRANXENE [Concomitant]
  5. VITAMIN B-12 [Concomitant]
  6. FOLIC ACID [Concomitant]
  7. CALCIUM [Concomitant]
  8. MAGNESIUM SULFATE [Concomitant]
  9. ASCORBIC ACID [Concomitant]
  10. MULTI-VITAMIN [Concomitant]

REACTIONS (1)
  - DIARRHOEA [None]
